FAERS Safety Report 4678024-9 (Version None)
Quarter: 2005Q2

REPORT INFORMATION
  Report Type: 
  Country: None (occurrence: None)
  Receive Date: 20050531
  Receipt Date: 20050524
  Transmission Date: 20051028
  Serious: Yes (Hospitalization, Disabling)
  Sender: FDA-Public Use
  Company Number: CA-MERCK-0505CAN00183

PATIENT
  Age: 78 Year
  Sex: Female
  Weight: 49 kg

DRUGS (6)
  1. FOSAMAX [Suspect]
     Indication: OSTEOPOROSIS
     Route: 048
     Dates: start: 20050330, end: 20050501
  2. VITAMIN D (UNSPECIFIED) [Concomitant]
     Indication: OSTEOPOROSIS
     Route: 065
     Dates: start: 20050103
  3. CALCIUM (UNSPECIFIED) [Concomitant]
     Indication: OSTEOPOROSIS
     Route: 065
     Dates: start: 20050103
  4. FOSINOPRIL SODIUM [Concomitant]
     Indication: HYPERTENSION
     Route: 065
     Dates: start: 19980101
  5. [COMPOSITION UNSPECIFIED] [Concomitant]
     Indication: MACULAR DEGENERATION
     Route: 065
     Dates: start: 20020101
  6. BUDESONIDE [Concomitant]
     Indication: ASTHMA
     Route: 065
     Dates: start: 20000101

REACTIONS (1)
  - INTRAOCULAR MELANOMA [None]
